FAERS Safety Report 9725589 (Version 1)
Quarter: 2013Q4

REPORT INFORMATION
  Report Type: Report from Study
  Country: US (occurrence: US)
  Receive Date: 20131203
  Receipt Date: 20131203
  Transmission Date: 20140711
  Serious: Yes (Death)
  Sender: FDA-Public Use
  Company Number: US-ROCHE-1307926

PATIENT
  Sex: Male
  Weight: 70.7 kg

DRUGS (13)
  1. AVASTIN [Suspect]
     Indication: GASTRIC CANCER
     Route: 042
     Dates: start: 20101104
  2. AVASTIN [Suspect]
     Route: 042
     Dates: start: 20101129
  3. AVASTIN [Suspect]
     Route: 042
     Dates: start: 20101213
  4. TYLENOL [Concomitant]
     Route: 048
  5. BENADRYL (UNITED STATES) [Concomitant]
     Route: 048
  6. ALOXI [Concomitant]
     Route: 065
  7. DECADRON [Concomitant]
     Route: 048
  8. CISPLATIN [Concomitant]
     Route: 042
  9. IRINOTECAN [Concomitant]
     Route: 042
  10. MANNITOL [Concomitant]
     Route: 040
  11. NEULASTA [Concomitant]
     Route: 058
  12. MAGNESIUM SULFATE [Concomitant]
     Route: 042
  13. NORMAL SALINE [Concomitant]
     Route: 065

REACTIONS (5)
  - Death [Fatal]
  - Constipation [Unknown]
  - Fatigue [Unknown]
  - Stomatitis [Unknown]
  - Neuropathy peripheral [Unknown]
